FAERS Safety Report 21795654 (Version 1)
Quarter: 2022Q4

REPORT INFORMATION
  Report Type: Spontaneous
  Country: JP (occurrence: JP)
  Receive Date: 20221229
  Receipt Date: 20221229
  Transmission Date: 20230113
  Serious: Yes (Death, Other)
  Sender: FDA-Public Use
  Company Number: JP-OTSUKA-2022_056140

PATIENT
  Age: 59 Year
  Sex: Male

DRUGS (2)
  1. SAMSCA [Suspect]
     Active Substance: TOLVAPTAN
     Indication: Congenital cystic kidney disease
     Dosage: 60/DAY
     Route: 048
     Dates: start: 20221120, end: 20221207
  2. ANPEC [MORPHINE HYDROCHLORIDE] [Concomitant]
     Indication: Analgesic therapy
     Dosage: UNK
     Route: 048

REACTIONS (2)
  - Death [Fatal]
  - Blood creatinine increased [Unknown]

NARRATIVE: CASE EVENT DATE: 20221207
